FAERS Safety Report 19148884 (Version 2)
Quarter: 2021Q2

REPORT INFORMATION
  Report Type: Other
  Country: JP (occurrence: JP)
  Receive Date: 20210417
  Receipt Date: 20210614
  Transmission Date: 20210717
  Serious: Yes (Hospitalization, Other)
  Sender: FDA-Public Use
  Company Number: JP-ROCHE-2806534

PATIENT

DRUGS (1)
  1. ATEZOLIZUMAB. [Suspect]
     Active Substance: ATEZOLIZUMAB
     Indication: NON-SMALL CELL LUNG CANCER
     Route: 065

REACTIONS (9)
  - Ileus [Unknown]
  - Pyrexia [Unknown]
  - Diabetic ketoacidosis [Recovered/Resolved]
  - Acidosis [Unknown]
  - Rash maculo-papular [Unknown]
  - Autoimmune disorder [Unknown]
  - Fatigue [Unknown]
  - Hypothyroidism [Unknown]
  - Arthritis [Unknown]
